FAERS Safety Report 6068463-6 (Version None)
Quarter: 2009Q1

REPORT INFORMATION
  Report Type: 
  Country: None (occurrence: None)
  Receive Date: 20090121
  Receipt Date: 20080410
  Transmission Date: 20090719
  Serious: Yes (Hospitalization, Other)
  Sender: FDA-Public Use
  Company Number: HQ5709510DEC2002

PATIENT
  Age: 58 Year
  Sex: Female

DRUGS (3)
  1. PREMPRO [Suspect]
     Dosage: 0.625MG/UNSPECIFIED, ORAL
     Route: 048
  2. PREMARIN [Suspect]
  3. PROVERA [Suspect]

REACTIONS (8)
  - ALOPECIA [None]
  - ANXIETY [None]
  - BREAST CANCER FEMALE [None]
  - DECREASED APPETITE [None]
  - DEPRESSED MOOD [None]
  - DIABETES MELLITUS [None]
  - HYPERTENSION [None]
  - SLEEP DISORDER [None]
